FAERS Safety Report 20010948 (Version 1)
Quarter: 2021Q4

REPORT INFORMATION
  Report Type: Spontaneous
  Country: US (occurrence: US)
  Receive Date: 20211028
  Receipt Date: 20211028
  Transmission Date: 20220303
  Serious: Yes (Other)
  Sender: FDA-Public Use
  Company Number: US-PFIZER INC-202101384870

PATIENT
  Age: 32 Year
  Sex: Female
  Weight: 88.44 kg

DRUGS (5)
  1. IBRANCE [Suspect]
     Active Substance: PALBOCICLIB
     Indication: Breast cancer female
     Dosage: 125 MG, DAILY X 21 DAYS
     Route: 048
     Dates: start: 20210719, end: 2021
  2. ONDANSETRON HYDROCHLORIDE [Concomitant]
     Active Substance: ONDANSETRON HYDROCHLORIDE
     Dosage: UNK
  3. OXYCODONE HYDROCHLORIDE [Concomitant]
     Active Substance: OXYCODONE HYDROCHLORIDE
     Dosage: 10 MG
  4. MORPHINE SULFATE [Concomitant]
     Active Substance: MORPHINE SULFATE
     Dosage: 0.5 MG/ML
  5. LETROZOLE [Concomitant]
     Active Substance: LETROZOLE
     Dosage: UNK

REACTIONS (5)
  - White blood cell count decreased [Unknown]
  - Nausea [Unknown]
  - Abdominal pain upper [Unknown]
  - Defaecation urgency [Unknown]
  - Fatigue [Unknown]

NARRATIVE: CASE EVENT DATE: 20210101
